FAERS Safety Report 8125952-8 (Version None)
Quarter: 2012Q1

REPORT INFORMATION
  Report Type: 
  Country: None (occurrence: None)
  Receive Date: 20120209
  Receipt Date: 20120206
  Transmission Date: 20120608
  Serious: Yes (Hospitalization, Other)
  Sender: FDA-Public Use
  Company Number: DE-ABBOTT-09P-062-0581957-00

PATIENT
  Sex: Female

DRUGS (4)
  1. HUMIRA [Suspect]
     Dates: start: 20090610, end: 20111102
  2. ARCOXIA [Concomitant]
     Indication: PRODUCT USED FOR UNKNOWN INDICATION
  3. HUMIRA [Suspect]
     Indication: ANKYLOSING SPONDYLITIS
     Route: 030
     Dates: start: 20070627, end: 20090513
  4. HUMIRA [Suspect]

REACTIONS (3)
  - HERPES ZOSTER [None]
  - BENIGN NEOPLASM OF SKIN [None]
  - BASAL CELL CARCINOMA [None]
